FAERS Safety Report 4963391-9 (Version None)
Quarter: 2006Q1

REPORT INFORMATION
  Report Type: 
  Country: None (occurrence: None)
  Receive Date: 20060329
  Receipt Date: 20060319
  Transmission Date: 20060701
  Serious: Yes (Death)
  Sender: FDA-Public Use
  Company Number: 2006S1000058

PATIENT

DRUGS (1)
  1. CUBICIN [Suspect]

REACTIONS (2)
  - BACTERIAL INFECTION [None]
  - SUPERINFECTION [None]
